FAERS Safety Report 20086904 (Version 2)
Quarter: 2021Q4

REPORT INFORMATION
  Report Type: Report from Study
  Country: US (occurrence: US)
  Receive Date: 20211118
  Receipt Date: 20211124
  Transmission Date: 20220303
  Serious: Yes (Death, Life-Threatening, Hospitalization, Other)
  Sender: FDA-Public Use
  Company Number: US-BRISTOL-MYERS SQUIBB COMPANY-BMS-2021-123236

PATIENT
  Age: 77 Year
  Sex: Male
  Weight: 84.1 kg

DRUGS (2)
  1. NIVOLUMAB [Suspect]
     Active Substance: NIVOLUMAB
     Indication: Transitional cell carcinoma
     Dosage: 480 MILLIGRAM
     Route: 065
     Dates: start: 20210923
  2. CABOZANTINIB [Suspect]
     Active Substance: CABOZANTINIB
     Indication: Transitional cell carcinoma
     Dosage: 40 MILLIGRAM
     Route: 065
     Dates: start: 20211021

REACTIONS (4)
  - Sepsis [Fatal]
  - Cholecystitis [Unknown]
  - Biliary obstruction [Unknown]
  - Renal failure [Unknown]

NARRATIVE: CASE EVENT DATE: 20211101
